FAERS Safety Report 11411401 (Version 1)
Quarter: 2015Q3

REPORT INFORMATION
  Report Type: Report from Study
  Country: FR (occurrence: FR)
  Receive Date: 20150824
  Receipt Date: 20150824
  Transmission Date: 20151125
  Serious: Yes (Hospitalization)
  Sender: FDA-Public Use
  Company Number: PHHO2015FR013360

PATIENT
  Age: 70 Year
  Sex: Male
  Weight: 82.8 kg

DRUGS (6)
  1. INC424 [Suspect]
     Active Substance: RUXOLITINIB
     Indication: POLYCYTHAEMIA VERA
     Dosage: 15 MG, UNK
     Route: 048
     Dates: start: 20120719
  2. PERINDOPRIL [Concomitant]
     Active Substance: PERINDOPRIL
     Indication: HYPERTENSION
     Dosage: 10 MG, QD
     Route: 048
  3. FUROSEMIDE. [Concomitant]
     Active Substance: FUROSEMIDE
     Indication: HYPERTENSION
     Dosage: 20 MG, QD
     Route: 048
     Dates: start: 20150731
  4. ACETYLSALICYLIC ACID [Suspect]
     Active Substance: ASPIRIN
     Indication: ANTICOAGULANT THERAPY
     Dosage: 15 MG, QD
     Route: 048
  5. METFORMIN [Concomitant]
     Active Substance: METFORMIN HYDROCHLORIDE
     Indication: HYPERGLYCAEMIA
     Dosage: 500 MG, TID
     Route: 048
     Dates: start: 20150731
  6. TIORFAN [Concomitant]
     Active Substance: RACECADOTRIL
     Indication: DIARRHOEA
     Dosage: 100 MG, TID
     Route: 048
     Dates: start: 20150731, end: 20150803

REACTIONS (2)
  - Rectal haemorrhage [Recovered/Resolved]
  - Anal fistula [Recovered/Resolved]

NARRATIVE: CASE EVENT DATE: 20150803
